FAERS Safety Report 12086221 (Version 1)
Quarter: 2016Q1

REPORT INFORMATION
  Report Type: Spontaneous
  Country: US (occurrence: US)
  Receive Date: 20160217
  Receipt Date: 20160217
  Transmission Date: 20160526
  Serious: No
  Sender: FDA-Public Use
  Company Number: US-ALLERGAN-1512086US

PATIENT
  Age: 61 Year
  Sex: Female

DRUGS (1)
  1. RESTASIS [Suspect]
     Active Substance: CYCLOSPORINE
     Indication: DACRYOSTENOSIS CONGENITAL
     Dosage: 1 GTT, Q12H
     Route: 047
     Dates: start: 201506, end: 201506

REACTIONS (3)
  - Eye irritation [Unknown]
  - Eye swelling [Not Recovered/Not Resolved]
  - Eye pruritus [Unknown]

NARRATIVE: CASE EVENT DATE: 201506
